FAERS Safety Report 23528223 (Version 1)
Quarter: 2024Q1

REPORT INFORMATION
  Report Type: Spontaneous
  Country: IL (occurrence: IL)
  Receive Date: 20240215
  Receipt Date: 20240215
  Transmission Date: 20240410
  Serious: Yes (Other)
  Sender: FDA-Public Use
  Company Number: IL-NAPPMUNDI-GBR-2024-0114347

PATIENT
  Age: 74 Year
  Sex: Female

DRUGS (5)
  1. OXYCONTIN [Suspect]
     Active Substance: OXYCODONE HYDROCHLORIDE
     Indication: Spinal pain
     Dosage: 20 MILLIGRAM, 7-8 YEARS AGO
     Route: 065
  2. OXYCONTIN [Suspect]
     Active Substance: OXYCODONE HYDROCHLORIDE
     Dosage: REDUCED THE DOSE TO 10 MILLIGRAM
     Route: 065
  3. OXYCONTIN [Suspect]
     Active Substance: OXYCODONE HYDROCHLORIDE
     Dosage: REDUCED THE DOSE TO 5 MILLIGRAM
     Route: 065
  4. OXYCONTIN [Suspect]
     Active Substance: OXYCODONE HYDROCHLORIDE
     Dosage: RESTARTED 10 MILLIGRAM
     Route: 065
  5. OXYCONTIN [Suspect]
     Active Substance: OXYCODONE HYDROCHLORIDE
     Dosage: 10 MILLIGRAM
     Route: 065
     Dates: start: 20240202

REACTIONS (7)
  - Drug dependence [Unknown]
  - Hypersomnia [Unknown]
  - Inappropriate affect [Unknown]
  - Therapeutic product effect incomplete [Unknown]
  - Wrong technique in product usage process [Unknown]
  - Rhinorrhoea [Unknown]
  - Feeling abnormal [Unknown]
